FAERS Safety Report 7556435-1 (Version None)
Quarter: 2011Q2

REPORT INFORMATION
  Report Type: 
  Country: None (occurrence: None)
  Receive Date: 20110620
  Receipt Date: 20110613
  Transmission Date: 20111010
  Serious: Yes (Death)
  Sender: FDA-Public Use
  Company Number: JP-ASTELLAS-2011JP003248

PATIENT
  Sex: Female
  Weight: 53 kg

DRUGS (2)
  1. TACROLIMUS [Suspect]
     Indication: RENAL TRANSPLANT
     Dosage: 7 MG, UID/QD
     Route: 048
     Dates: start: 20110411, end: 20110413
  2. PROGRAF [Suspect]
     Indication: RENAL TRANSPLANT
     Dosage: 2 MG, UID/QD
     Route: 041
     Dates: start: 20110414, end: 20110417

REACTIONS (3)
  - DRUG INEFFECTIVE [None]
  - THROMBOTIC MICROANGIOPATHY [None]
  - KIDNEY TRANSPLANT REJECTION [None]
